FAERS Safety Report 10617303 (Version 2)
Quarter: 2015Q1

REPORT INFORMATION
  Report Type: Spontaneous
  Country: IT (occurrence: IT)
  Receive Date: 20141201
  Receipt Date: 20150115
  Transmission Date: 20150720
  Serious: Yes (Hospitalization)
  Sender: FDA-Public Use
  Company Number: IT-TEVA-523904ISR

PATIENT
  Age: 42 Year
  Sex: Male

DRUGS (5)
  1. EN [Concomitant]
     Active Substance: DELORAZEPAM
     Indication: AGITATION
     Dosage: 30 GTT DAILY;
     Route: 048
  2. OLANZAPINA TEVA [Suspect]
     Active Substance: OLANZAPINE
     Indication: PSYCHOTIC DISORDER
     Dosage: 5MG +10MG
     Route: 048
     Dates: start: 20140101, end: 20141110
  3. DEPAKIN 500 MG [Interacting]
     Active Substance: VALPROATE SODIUM
     Indication: PSYCHOTIC DISORDER
     Dosage: 3 DOSAGE FORMS DAILY;
     Route: 048
     Dates: start: 20140101, end: 20141110
  4. LAMICTAL [Concomitant]
     Active Substance: LAMOTRIGINE
     Dosage: 150 MILLIGRAM DAILY;
     Route: 048
  5. EN [Concomitant]
     Active Substance: DELORAZEPAM
     Indication: DYSPNOEA

REACTIONS (7)
  - Psychomotor hyperactivity [Recovering/Resolving]
  - Epilepsy [Recovering/Resolving]
  - Drug interaction [Recovering/Resolving]
  - Insomnia [Recovering/Resolving]
  - Blood creatine phosphokinase increased [Recovering/Resolving]
  - Abnormal behaviour [Recovering/Resolving]
  - Hyponatraemia [Recovering/Resolving]

NARRATIVE: CASE EVENT DATE: 20141106
